FAERS Safety Report 7026261-0 (Version None)
Quarter: 2010Q4

REPORT INFORMATION
  Report Type: 
  Country: None (occurrence: None)
  Receive Date: 20101004
  Receipt Date: 20100908
  Transmission Date: 20110411
  Serious: Yes (Hospitalization)
  Sender: FDA-Public Use
  Company Number: GB-RANBAXY-2010RR-37496

PATIENT
  Sex: Male

DRUGS (2)
  1. CIPROFLOXACIN [Suspect]
     Indication: GASTROENTERITIS SALMONELLA
     Route: 048
  2. CIPROFLOXACIN [Suspect]
     Route: 042

REACTIONS (2)
  - COLECTOMY [None]
  - SPLENECTOMY [None]
